FAERS Safety Report 10223992 (Version 3)
Quarter: 2014Q4

REPORT INFORMATION
  Report Type: Spontaneous
  Country: IT (occurrence: IT)
  Receive Date: 20140609
  Receipt Date: 20141001
  Transmission Date: 20150528
  Serious: Yes (Other)
  Sender: FDA-Public Use
  Company Number: IT-PFIZER INC-2014156604

PATIENT
  Age: 76 Year
  Sex: Female

DRUGS (2)
  1. LYRICA [Suspect]
     Active Substance: PREGABALIN
     Indication: BACK PAIN
     Dosage: 75 MG, DAILY
     Dates: start: 20140421, end: 20140423
  2. TORA-DOL [Suspect]
     Active Substance: KETOROLAC TROMETHAMINE
     Indication: BACK PAIN
     Dosage: 60 GTT, DAILY
     Route: 048
     Dates: start: 20140421, end: 20140423

REACTIONS (2)
  - Hypertensive crisis [Recovering/Resolving]
  - Sciatica [Unknown]

NARRATIVE: CASE EVENT DATE: 20140423
